FAERS Safety Report 21999279 (Version 1)
Quarter: 2023Q1

REPORT INFORMATION
  Report Type: Report from Study
  Country: ES (occurrence: ES)
  Receive Date: 20230216
  Receipt Date: 20230216
  Transmission Date: 20230417
  Serious: Yes (Other)
  Sender: FDA-Public Use
  Company Number: ES-BAXTER-2023BAX010775

PATIENT
  Age: 65 Year
  Sex: Male

DRUGS (15)
  1. BORTEZOMIB [Suspect]
     Active Substance: BORTEZOMIB
     Indication: Plasma cell myeloma
     Dosage: 6 CYCLES OF VTD THERAPY, INDUCTION CHEMOTHERAPY
     Route: 065
  2. BORTEZOMIB [Suspect]
     Active Substance: BORTEZOMIB
     Dosage: RESCUE WITH DVD THERAPY, 3 CYCLES
     Route: 065
  3. LENALIDOMIDE [Suspect]
     Active Substance: LENALIDOMIDE
     Indication: Plasma cell myeloma
     Dosage: 6 CYCLES THERAPY
     Route: 065
  4. DOXORUBICIN [Suspect]
     Active Substance: DOXORUBICIN
     Indication: Plasma cell myeloma
     Dosage: RESCUE CHEMOTHERAPY PROTOCOL, VTD-PACE,
     Route: 065
  5. DEXAMETHASONE [Suspect]
     Active Substance: DEXAMETHASONE
     Indication: Plasma cell myeloma
     Dosage: RESCUE WITH DVD THERAPY
     Route: 065
  6. DEXAMETHASONE [Suspect]
     Active Substance: DEXAMETHASONE
     Dosage: 6 CYCLES OF VTD THERAPY, INDUCTION CHEMOTHERAPY
     Route: 065
  7. CISPLATIN [Suspect]
     Active Substance: CISPLATIN
     Indication: Plasma cell myeloma
     Dosage: RESCUE CHEMOTHERAPY PROTOCOL, VTD-PACE
     Route: 065
  8. TECLISTAMAB [Suspect]
     Active Substance: TECLISTAMAB
     Indication: Plasma cell myeloma
     Dosage: 4TH LINE TREATMENT, 14 CYCLES, ONGOING
     Route: 065
  9. ETOPOSIDE [Suspect]
     Active Substance: ETOPOSIDE
     Indication: Plasma cell myeloma recurrent
     Dosage: RESCUE CHEMOTHERAPY PROTOCOL, VTD-PACE,
     Route: 065
  10. ETOPOSIDE [Suspect]
     Active Substance: ETOPOSIDE
     Indication: Plasma cell myeloma
  11. THALIDOMIDE [Suspect]
     Active Substance: THALIDOMIDE
     Indication: Plasma cell myeloma
     Dosage: 6 CYCLES OF VTD THERAPY, INDUCTION CHEMOTHERAPY
     Route: 065
  12. DARATUMUMAB [Suspect]
     Active Substance: DARATUMUMAB
     Indication: Plasma cell myeloma
     Dosage: RESCUE WITH DVD THERAPY, 3 CYCLES
     Route: 065
  13. CYCLOPHOSPHAMIDE [Suspect]
     Active Substance: CYCLOPHOSPHAMIDE
     Indication: Plasma cell myeloma
     Dosage: INDUCTION CHEMOTHERAPY WITH VTD, THALIDOMIDE
     Route: 065
  14. CYCLOPHOSPHAMIDE [Suspect]
     Active Substance: CYCLOPHOSPHAMIDE
     Dosage: RESCUE CHEMOTHERAPY PROTOCOL, VTD-PACE
     Route: 065
  15. VELCADE [Suspect]
     Active Substance: BORTEZOMIB
     Indication: Plasma cell myeloma
     Dosage: UNK
     Route: 065

REACTIONS (12)
  - Toxic skin eruption [Unknown]
  - Thrombophlebitis [Unknown]
  - Bacteraemia [Unknown]
  - Staphylococcal bacteraemia [Unknown]
  - Pyrexia [Unknown]
  - Febrile neutropenia [Unknown]
  - Neuropathy peripheral [Unknown]
  - Rash pruritic [Unknown]
  - Hypertransaminasaemia [Unknown]
  - Plasma cell myeloma recurrent [Recovering/Resolving]
  - Disease progression [Unknown]
  - Asthenia [Unknown]
